FAERS Safety Report 8966759 (Version 1)
Quarter: 2012Q4

REPORT INFORMATION
  Report Type: 
  Country: RU (occurrence: RU)
  Receive Date: 20121217
  Receipt Date: 20121217
  Transmission Date: 20130627
  Serious: Yes (Other)
  Sender: FDA-Public Use
  Company Number: RU-BAYER-2012-130495

PATIENT
  Sex: Female

DRUGS (1)
  1. AVELOX [Suspect]
     Indication: GENITOURINARY TRACT INFECTION

REACTIONS (2)
  - Cardiac disorder [None]
  - Tachycardia [None]
